FAERS Safety Report 13036837 (Version 1)
Quarter: 2016Q4

REPORT INFORMATION
  Report Type: Report from Study
  Country: None (occurrence: BR)
  Receive Date: 20161216
  Receipt Date: 20161216
  Transmission Date: 20170207
  Serious: Yes (Disabling, Other)
  Sender: FDA-Public Use
  Company Number: BR-ABBVIE-16K-020-1806623-00

PATIENT
  Sex: Female

DRUGS (3)
  1. SINVASTATINE [Concomitant]
     Indication: BLOOD CHOLESTEROL INCREASED
     Route: 048
     Dates: start: 2015
  2. HUMIRA [Suspect]
     Active Substance: ADALIMUMAB
     Indication: RHEUMATOID ARTHRITIS
     Route: 058
     Dates: start: 20121105, end: 201608
  3. SODIUM IBANDRONATE [Concomitant]
     Indication: OSTEOPOROSIS
     Route: 048
     Dates: start: 2014

REACTIONS (7)
  - Tooth extraction [Recovered/Resolved]
  - Benign neoplasm [Unknown]
  - Hypertension [Unknown]
  - Open fracture [Recovered/Resolved]
  - Diabetes mellitus [Unknown]
  - Bone loss [Unknown]
  - Fall [Unknown]

NARRATIVE: CASE EVENT DATE: 2012
